FAERS Safety Report 4824308-0 (Version None)
Quarter: 2005Q4

REPORT INFORMATION
  Report Type: 
  Country: None (occurrence: None)
  Receive Date: 20051108
  Receipt Date: 20051020
  Transmission Date: 20060501
  Serious: Yes (Hospitalization)
  Sender: FDA-Public Use
  Company Number: USA0509109600

PATIENT
  Age: 17 Year
  Sex: Female

DRUGS (9)
  1. STRATTERA [Suspect]
     Indication: ATTENTION DEFICIT/HYPERACTIVITY DISORDER
     Dates: start: 20050103, end: 20050201
  2. CYMBALTA [Suspect]
     Indication: DEPRESSION
     Dosage: 60 MG IN THE MORNING
     Dates: start: 20050201
  3. SEROQUEL [Concomitant]
  4. NALTREXONE [Concomitant]
  5. ADDERALL XR 10 [Concomitant]
  6. CONTRACEPTIVE PILL (ORAL CONTRACEPTIVE NOS) [Concomitant]
  7. VITAMINS NOS [Concomitant]
  8. MINOCYCLINE [Concomitant]
  9. PAXIL [Concomitant]

REACTIONS (2)
  - SELF-INJURIOUS IDEATION [None]
  - SUICIDAL IDEATION [None]
